FAERS Safety Report 8994501 (Version 1)
Quarter: 2012Q4

REPORT INFORMATION
  Report Type: Spontaneous
  Country: US (occurrence: None)
  Receive Date: 20121228
  Receipt Date: 20121228
  Transmission Date: 20130627
  Serious: Yes (Hospitalization)
  Sender: FDA-Public Use
  Company Number: None

PATIENT
  Age: 28 Year
  Sex: Male
  Weight: 52.1 kg

DRUGS (1)
  1. KINERET [Suspect]
     Indication: NOMID
     Dosage: 6.7mg/kg/day daily SC
     Route: 058

REACTIONS (7)
  - Migraine [None]
  - Cerebral ventricle dilatation [None]
  - CSF pressure increased [None]
  - Device malfunction [None]
  - Postoperative adhesion [None]
  - Tachycardia [None]
  - Pyrexia [None]
